FAERS Safety Report 5171080-3 (Version None)
Quarter: 2006Q4

REPORT INFORMATION
  Report Type: 
  Country: None (occurrence: None)
  Receive Date: 20061213
  Receipt Date: 20061211
  Transmission Date: 20070319
  Serious: Yes (Other)
  Sender: FDA-Public Use
  Company Number: US-GLAXOSMITHKLINE-A0631346A

PATIENT
  Age: 53 Year
  Sex: Male

DRUGS (2)
  1. COREG [Suspect]
     Indication: MYOCARDIAL INFARCTION
     Route: 048
  2. UNKNOWN MEDICATION [Concomitant]

REACTIONS (1)
  - MYOCARDIAL INFARCTION [None]
